FAERS Safety Report 5130997-6 (Version None)
Quarter: 2006Q4

REPORT INFORMATION
  Report Type: 
  Country: None (occurrence: None)
  Receive Date: 20061019
  Receipt Date: 20061012
  Transmission Date: 20070319
  Serious: Yes (Hospitalization)
  Sender: FDA-Public Use
  Company Number: US-MERCK-0610USA09369

PATIENT
  Age: 69 Year
  Sex: Female

DRUGS (3)
  1. FOSAMAX [Suspect]
     Indication: OSTEOPOROSIS
     Route: 048
     Dates: end: 20050701
  2. VERAPAMIL [Concomitant]
     Route: 065
  3. CRESTOR [Concomitant]
     Route: 065

REACTIONS (2)
  - BENIGN GASTRIC NEOPLASM [None]
  - HAEMATOCHEZIA [None]
